FAERS Safety Report 6287955-8 (Version None)
Quarter: 2009Q3

REPORT INFORMATION
  Report Type: 
  Country: None (occurrence: None)
  Receive Date: 20090729
  Receipt Date: 20090720
  Transmission Date: 20100115
  Serious: Yes (Other)
  Sender: FDA-Public Use
  Company Number: US-JNJFOC-20090700657

PATIENT
  Sex: Female
  Weight: 85.28 kg

DRUGS (15)
  1. REMICADE [Suspect]
     Route: 042
  2. REMICADE [Suspect]
     Route: 042
  3. REMICADE [Suspect]
     Indication: PSORIASIS
     Route: 042
  4. ADDERALL 10 [Concomitant]
  5. SYNTHROID [Concomitant]
  6. ZOLOFT [Concomitant]
  7. DEPAKOTE [Concomitant]
  8. ATIVAN [Concomitant]
  9. TRAZODONE [Concomitant]
  10. SINGULAIR [Concomitant]
  11. LIPITOR [Concomitant]
  12. PREVACID [Concomitant]
  13. ADVAIR HFA [Concomitant]
  14. ALBUTEROL [Concomitant]
  15. VICODIN [Concomitant]

REACTIONS (1)
  - LUPUS-LIKE SYNDROME [None]
